FAERS Safety Report 6379030-9 (Version None)
Quarter: 2009Q3

REPORT INFORMATION
  Report Type: 
  Country: None (occurrence: None)
  Receive Date: 20090928
  Receipt Date: 20090921
  Transmission Date: 20100115
  Serious: Yes (Hospitalization)
  Sender: FDA-Public Use
  Company Number: PHHO2009IT11705

PATIENT
  Sex: Male
  Weight: 80 kg

DRUGS (1)
  1. AMN107 AMN+CAP [Suspect]
     Indication: CHRONIC MYELOID LEUKAEMIA
     Dosage: 800 MG DAILY
     Route: 048
     Dates: start: 20090908, end: 20090912

REACTIONS (3)
  - ABDOMINAL PAIN [None]
  - BLOOD AMYLASE INCREASED [None]
  - PANCREATITIS [None]
